FAERS Safety Report 9664251 (Version 2)
Quarter: 2014Q1

REPORT INFORMATION
  Report Type: Report from Study
  Country: FR (occurrence: FR)
  Receive Date: 20131101
  Receipt Date: 20140212
  Transmission Date: 20141002
  Serious: Yes (Death, Hospitalization)
  Sender: FDA-Public Use
  Company Number: FR-SA-2013SA109657

PATIENT
  Age: 65 Year
  Sex: Male

DRUGS (2)
  1. CAMPATH [Suspect]
     Indication: B-CELL PROLYMPHOCYTIC LEUKAEMIA
     Route: 065
     Dates: start: 201305
  2. CAMPATH [Suspect]
     Indication: B-CELL PROLYMPHOCYTIC LEUKAEMIA
     Route: 065
     Dates: start: 201305

REACTIONS (1)
  - Shock haemorrhagic [Fatal]
